FAERS Safety Report 5657816-3 (Version None)
Quarter: 2008Q1

REPORT INFORMATION
  Report Type: 
  Country: None (occurrence: None)
  Receive Date: 20080310
  Receipt Date: 20071127
  Transmission Date: 20080703
  Serious: No
  Sender: FDA-Public Use
  Company Number: US-ASTRAZENECA-2007UW27049

PATIENT
  Age: 86 Year
  Sex: Female

DRUGS (4)
  1. ZESTRIL [Suspect]
     Indication: HYPERTENSION
     Dates: start: 20070701
  2. LOPRESSOR [Concomitant]
     Indication: HYPERTENSION
     Dates: start: 20070701
  3. PROCARDIA [Concomitant]
     Indication: HYPERTENSION
     Dates: start: 20070701
  4. ARAVA [Concomitant]

REACTIONS (1)
  - HYPERTENSION [None]
